FAERS Safety Report 21336137 (Version 4)
Quarter: 2023Q2

REPORT INFORMATION
  Report Type: Report from Study
  Country: US (occurrence: US)
  Receive Date: 20220915
  Receipt Date: 20230403
  Transmission Date: 20230722
  Serious: No
  Sender: FDA-Public Use
  Company Number: US-NOVARTISTESTPH-NVSC2022US208326

PATIENT
  Age: 40 Year
  Sex: Male

DRUGS (2)
  1. VOTRIENT [Suspect]
     Active Substance: PAZOPANIB HYDROCHLORIDE
     Indication: Connective tissue neoplasm
     Dosage: 800 MG, QD
     Route: 048
     Dates: start: 20220906
  2. VOTRIENT [Suspect]
     Active Substance: PAZOPANIB HYDROCHLORIDE
     Indication: Soft tissue sarcoma

REACTIONS (7)
  - Pain [Unknown]
  - Mucosal pain [Unknown]
  - Oral pain [Unknown]
  - Herpes zoster [Unknown]
  - Diarrhoea [Unknown]
  - Fatigue [Unknown]
  - Hair colour changes [Unknown]

NARRATIVE: CASE EVENT DATE: 20221012
